FAERS Safety Report 20866543 (Version 3)
Quarter: 2022Q2

REPORT INFORMATION
  Report Type: Spontaneous
  Country: US (occurrence: US)
  Receive Date: 20220524
  Receipt Date: 20220606
  Transmission Date: 20220721
  Serious: Yes (Hospitalization, Other)
  Sender: FDA-Public Use
  Company Number: US-009507513-2205USA006410

PATIENT
  Sex: Female
  Weight: 62 kg

DRUGS (3)
  1. CUBICIN [Suspect]
     Active Substance: DAPTOMYCIN
     Indication: Osteomyelitis
     Dosage: ^550 MG DAILY Q 24^
     Route: 042
  2. NARCO [Concomitant]
  3. EPINEPHRINE [Concomitant]
     Active Substance: EPINEPHRINE
     Indication: Hypersensitivity

REACTIONS (5)
  - Adverse event [Unknown]
  - Ascites [Not Recovered/Not Resolved]
  - Dialysis [Unknown]
  - Weight increased [Unknown]
  - Product use in unapproved indication [Unknown]
